FAERS Safety Report 9197633 (Version 1)
Quarter: 2013Q1

REPORT INFORMATION
  Report Type: Spontaneous
  Country: US (occurrence: None)
  Receive Date: 20120709
  Receipt Date: 20120709
  Transmission Date: 20140127
  Serious: Yes (Hospitalization, Other)
  Sender: FDA-Public Use
  Company Number: PHHY2011US48243

PATIENT
  Age: 67 Year
  Sex: Female
  Weight: 88.9 kg

DRUGS (1)
  1. GLEEVEC (IMATINIB) [Suspect]
     Indication: CHRONIC MYELOID LEUKAEMIA
     Route: 048
     Dates: start: 201104

REACTIONS (11)
  - Dehydration [None]
  - Decreased appetite [None]
  - Pneumonia [None]
  - Anaemia [None]
  - Herpes zoster [None]
  - Nausea [None]
  - Weight decreased [None]
  - Dysgeusia [None]
  - Alopecia [None]
  - Asthenia [None]
  - Vomiting [None]
